FAERS Safety Report 21280583 (Version 1)
Quarter: 2022Q3

REPORT INFORMATION
  Report Type: Spontaneous
  Country: IR (occurrence: IR)
  Receive Date: 20220901
  Receipt Date: 20220901
  Transmission Date: 20221027
  Serious: Yes (Death, Hospitalization, Other)
  Sender: FDA-Public Use
  Company Number: IR-PFIZER INC-202201088395

PATIENT
  Age: 9 Year
  Sex: Female

DRUGS (6)
  1. CYTARABINE [Suspect]
     Active Substance: CYTARABINE
     Indication: Acute lymphocytic leukaemia
     Dosage: 100 MG/M2, CYCLIC
     Dates: start: 20201120
  2. ETOPOSIDE [Suspect]
     Active Substance: ETOPOSIDE
     Indication: Acute lymphocytic leukaemia
     Dosage: UNK UNK, CYCLIC
     Dates: start: 20201120
  3. VINCRISTINE [Suspect]
     Active Substance: VINCRISTINE
     Indication: Acute lymphocytic leukaemia
     Dosage: UNK UNK, WEEKLY
     Dates: start: 20201120
  4. DEXAMETHASONE [Suspect]
     Active Substance: DEXAMETHASONE
     Indication: Acute lymphocytic leukaemia
     Dosage: 2 MG, 3X/DAY
     Dates: start: 20201120
  5. AMPHOTERICIN B [Suspect]
     Active Substance: AMPHOTERICIN B
     Indication: Antifungal prophylaxis
     Dosage: 2.5 MG/KG, ALTERNATE DAY
     Dates: start: 20201120
  6. SULFAMETHOXAZOLE\TRIMETHOPRIM [Concomitant]
     Active Substance: SULFAMETHOXAZOLE\TRIMETHOPRIM
     Indication: Antifungal prophylaxis
     Dosage: 200/40 MG, 2X/DAY, THREE TIMES/WEEK
     Dates: start: 20201120

REACTIONS (3)
  - Neutropenic colitis [Fatal]
  - Mucormycosis [Fatal]
  - Neutropenia [Fatal]

NARRATIVE: CASE EVENT DATE: 20201130
